FAERS Safety Report 8394078-0 (Version None)
Quarter: 2012Q2

REPORT INFORMATION
  Report Type: 
  Country: None (occurrence: None)
  Receive Date: 20120523
  Receipt Date: 20120515
  Transmission Date: 20120825
  Serious: Yes (Other)
  Sender: FDA-Public Use
  Company Number: B0802440A

PATIENT
  Sex: Female

DRUGS (3)
  1. PAPAVERINE [Concomitant]
  2. MELPHALAN HYDROCHLORIDE [Suspect]
     Indication: MALIGNANT MELANOMA
     Dosage: UNK / UNK / INTRAVENOUS INFUSION
     Route: 042
  3. SORAFENIB (FORMULATION UNKNOWN) (SORAFENIB) [Suspect]
     Indication: MALIGNANT MELANOMA
     Dosage: 600 MG / UNK / UNKNOWN

REACTIONS (1)
  - TOXICITY TO VARIOUS AGENTS [None]
